FAERS Safety Report 21136976 (Version 1)
Quarter: 2022Q3

REPORT INFORMATION
  Report Type: Spontaneous
  Country: US (occurrence: None)
  Receive Date: 20220726
  Receipt Date: 20220726
  Transmission Date: 20221027
  Serious: Yes (Disabling, Other)
  Sender: FDA-Public Use
  Company Number: None

PATIENT
  Age: 55 Year
  Sex: Female
  Weight: 59.4 kg

DRUGS (14)
  1. KLONOPIN [Suspect]
     Active Substance: CLONAZEPAM
     Indication: Sleep disorder
     Dosage: FREQUENCY : AT BEDTIME;?
     Route: 048
     Dates: start: 20100606, end: 20200120
  2. KLONOPIN [Suspect]
     Active Substance: CLONAZEPAM
     Indication: Anxiety
  3. GABAPENTIN [Concomitant]
     Active Substance: GABAPENTIN
  4. BUSPIRONE [Concomitant]
     Active Substance: BUSPIRONE HYDROCHLORIDE
  5. NAPROXEN [Concomitant]
     Active Substance: NAPROXEN
  6. VITAMIN B COMPLEX [Concomitant]
     Active Substance: CYANOCOBALAMIN\DEXPANTHENOL\NIACINAMIDE\PYRIDOXINE HYDROCHLORIDE\RIBOFLAVIN 5^-PHOSPHATE SODIUM\THIA
  7. BLACK COHOSH [Concomitant]
     Active Substance: BLACK COHOSH
  8. CALCIUM [Concomitant]
     Active Substance: CALCIUM
  9. MAGNESIUM [Concomitant]
     Active Substance: MAGNESIUM
  10. VITAMIN D [Concomitant]
     Active Substance: VITAMIN D NOS
  11. ZINC [Concomitant]
     Active Substance: ZINC
  12. HERBALS\TURMERIC [Concomitant]
     Active Substance: HERBALS\TURMERIC
  13. GINGER [Concomitant]
     Active Substance: GINGER
  14. All natural sleeping aid [Concomitant]

REACTIONS (32)
  - Withdrawal syndrome [None]
  - Insomnia [None]
  - Psychomotor hyperactivity [None]
  - Heart rate increased [None]
  - Blood pressure increased [None]
  - Dyspnoea [None]
  - Chest discomfort [None]
  - Feeling abnormal [None]
  - Feeling hot [None]
  - Hyperhidrosis [None]
  - Feeling cold [None]
  - Chills [None]
  - Asthenia [None]
  - Presyncope [None]
  - Fall [None]
  - Hair disorder [None]
  - Back pain [None]
  - Neck pain [None]
  - Electric shock sensation [None]
  - Pruritus [None]
  - Feeling abnormal [None]
  - Formication [None]
  - Pruritus [None]
  - Intentional self-injury [None]
  - Menopause [None]
  - Drug ineffective [None]
  - Contusion [None]
  - Incorrect product administration duration [None]
  - Fear [None]
  - Vertigo [None]
  - Near death experience [None]
  - Blepharospasm [None]

NARRATIVE: CASE EVENT DATE: 20200122
